FAERS Safety Report 9440409 (Version 1)
Quarter: 2013Q3

REPORT INFORMATION
  Report Type: Spontaneous
  Country: JP (occurrence: JP)
  Receive Date: 20130805
  Receipt Date: 20130805
  Transmission Date: 20140515
  Serious: Yes (Death)
  Sender: FDA-Public Use
  Company Number: JP-MYLANLABS-2013S1016459

PATIENT
  Age: 57 Year
  Sex: Male

DRUGS (3)
  1. EPIRUBICIN [Suspect]
     Indication: TESTIS CANCER
     Route: 041
  2. BLEOMYCIN [Suspect]
     Indication: TESTIS CANCER
     Route: 041
  3. CISPLATIN [Concomitant]
     Indication: TESTIS CANCER

REACTIONS (1)
  - Hepatic amoebiasis [Fatal]
